FAERS Safety Report 8061583-6 (Version None)
Quarter: 2012Q1

REPORT INFORMATION
  Report Type: 
  Country: None (occurrence: None)
  Receive Date: 20120122
  Receipt Date: 20111018
  Transmission Date: 20120608
  Serious: Yes (Hospitalization)
  Sender: FDA-Public Use
  Company Number: PHHO2011NL15887

PATIENT
  Age: 54 Year
  Sex: Female

DRUGS (14)
  1. CYCLOPHOSPHAMIDE [Concomitant]
     Indication: BREAST CANCER
     Dosage: 950 MG, UNK
     Route: 042
     Dates: start: 20110819
  2. ACETAMINOPHEN [Concomitant]
  3. CIPROFLAXACIN [Concomitant]
     Dosage: UNK
     Dates: start: 20110823, end: 20110902
  4. NYSTATINE [Concomitant]
     Dosage: UNK
     Dates: start: 20110726
  5. DEXAMETHASONE [Concomitant]
     Indication: PROPHYLAXIS
  6. NEULASTA [Concomitant]
     Indication: PROPHYLAXIS
  7. NEXIUM [Concomitant]
     Dosage: UNK
     Dates: start: 20110726
  8. ANTAGEL [Concomitant]
  9. GRANISETRON [Concomitant]
  10. ZOLEDRONIC [Suspect]
     Indication: BREAST CANCER
     Dosage: 4 MG, UNK
     Route: 042
     Dates: start: 20110819
  11. ADRIAMYCIN PFS [Suspect]
     Indication: BREAST CANCER
     Dosage: 95 MG, UNK
     Route: 042
     Dates: start: 20110819
  12. ONDANSETRON [Concomitant]
     Indication: PROPHYLAXIS
  13. TAXOTERE [Concomitant]
     Indication: BREAST CANCER
     Dosage: 140 MG, UNK
     Route: 042
     Dates: start: 20110819
  14. CAD [Concomitant]

REACTIONS (1)
  - PROCTOCOLITIS [None]
